FAERS Safety Report 9392144 (Version 4)
Quarter: 2013Q4

REPORT INFORMATION
  Report Type: Spontaneous
  Country: JP (occurrence: JP)
  Receive Date: 20130709
  Receipt Date: 20131014
  Transmission Date: 20140711
  Serious: Yes (Other)
  Sender: FDA-Public Use
  Company Number: JP-PFIZER INC-2013201219

PATIENT
  Age: 70 Year
  Sex: Male

DRUGS (2)
  1. CAMPTO [Suspect]
     Indication: GASTRIC CANCER
     Dosage: 60 MG, 1X/DAY
     Route: 041
     Dates: start: 201003, end: 201012
  2. CISPLATIN [Suspect]
     Indication: GASTRIC CANCER
     Dosage: 30 MG, 1X/DAY
     Route: 041
     Dates: start: 201003, end: 201012

REACTIONS (3)
  - Second primary malignancy [Unknown]
  - Acute myeloid leukaemia [Unknown]
  - Pneumonitis [Recovering/Resolving]
